FAERS Safety Report 8336171-4 (Version None)
Quarter: 2012Q2

REPORT INFORMATION
  Report Type: 
  Country: None (occurrence: None)
  Receive Date: 20120504
  Receipt Date: 20120424
  Transmission Date: 20120825
  Serious: Yes (Other)
  Sender: FDA-Public Use
  Company Number: CA-CELGENEUS-028-C5013-11020845

PATIENT
  Sex: Female
  Weight: 48 kg

DRUGS (36)
  1. LOVENOX [Concomitant]
     Indication: PULMONARY EMBOLISM
     Dosage: 80 MILLIGRAM
     Route: 058
     Dates: start: 20100710, end: 20110414
  2. MORPHINE [Concomitant]
     Dosage: 60 MILLIGRAM
     Route: 065
     Dates: start: 20100707
  3. MILK OF MAGNESIA TAB [Concomitant]
     Dosage: 15 MILLIGRAM
     Route: 065
     Dates: start: 20100521
  4. PAMIDRONATE DISODIUM [Concomitant]
     Indication: SUPPORTIVE CARE
  5. CALCIUM [Concomitant]
     Indication: OSTEOPENIA
     Dosage: 500 MILLIGRAM
     Route: 065
     Dates: start: 20000101
  6. LENALIDOMIDE [Suspect]
     Indication: MULTIPLE MYELOMA
     Dosage: 25 MILLIGRAM
     Route: 048
     Dates: start: 20100610
  7. LENALIDOMIDE [Suspect]
     Dosage: 25 MILLIGRAM
     Route: 048
     Dates: start: 20110526
  8. DALTEPARIN SODIUM [Concomitant]
     Dosage: 10000 IU (INTERNATIONAL UNIT)
     Route: 065
     Dates: start: 20100626, end: 20100709
  9. LENALIDOMIDE [Suspect]
     Dosage: 25 MILLIGRAM
     Route: 048
     Dates: start: 20110317, end: 20110413
  10. COLACE [Concomitant]
     Indication: CONSTIPATION
     Route: 065
     Dates: start: 20100521, end: 20100601
  11. SOFLAX [Concomitant]
     Indication: CONSTIPATION
     Route: 065
     Dates: start: 20100601
  12. MS CONTIN [Concomitant]
     Dosage: 45 MILLIGRAM
     Route: 065
     Dates: start: 20100929, end: 20101101
  13. LENALIDOMIDE [Suspect]
     Dosage: 25 MILLIGRAM
     Route: 048
     Dates: start: 20110120
  14. LOVENOX [Concomitant]
     Dosage: 80 MILLIGRAM
     Route: 058
     Dates: start: 20110415
  15. MORPHINE [Concomitant]
     Dosage: 15 MILLIGRAM
     Route: 065
     Dates: start: 20100626, end: 20100706
  16. VITAMIN D [Concomitant]
     Indication: VITAMIN SUPPLEMENTATION
     Dosage: 2000 MILLIGRAM
     Route: 065
     Dates: start: 20080101
  17. LOVAZA [Concomitant]
     Indication: VITAMIN SUPPLEMENTATION
     Route: 065
     Dates: start: 20090101
  18. MAGIC MOUTHWASH [Concomitant]
     Dosage: 2.5 MILLILITER
     Route: 065
     Dates: start: 20100913, end: 20100929
  19. EXTRA STRENGTH TYLENOL [Concomitant]
     Indication: BONE PAIN
     Dosage: 2 TABLET
     Route: 048
     Dates: start: 20091109, end: 20101101
  20. DEXAMETHASONE [Suspect]
     Dosage: 20 MILLIGRAM
     Route: 065
     Dates: start: 20110519
  21. MORPHINE [Concomitant]
     Dosage: 30 MILLIGRAM
     Route: 065
     Dates: start: 20100626, end: 20100706
  22. AMITRIPTYLINE HCL [Concomitant]
     Dosage: 50 MILLIGRAM
     Route: 065
     Dates: start: 20100629
  23. IRON [Concomitant]
     Dosage: 300 MILLIGRAM
     Route: 065
     Dates: start: 20110504, end: 20110518
  24. DEXAMETHASONE [Suspect]
     Dosage: 20 MILLIGRAM
     Route: 065
     Dates: start: 20110317, end: 20110407
  25. MORPHINE [Concomitant]
     Indication: BONE PAIN
     Dosage: 5 MILLIGRAM
     Route: 065
     Dates: start: 20100430, end: 20100525
  26. MORPHINE [Concomitant]
     Dosage: 15 MILLIGRAM
     Route: 065
     Dates: start: 20100430, end: 20100625
  27. PAMIDRONATE DISODIUM [Concomitant]
     Indication: BONE DISORDER
     Dosage: 90 MILLIGRAM
     Route: 065
     Dates: start: 20100617
  28. MS CONTIN [Concomitant]
     Indication: BONE PAIN
     Dosage: 60 MILLIGRAM
     Route: 065
     Dates: start: 20100707, end: 20100929
  29. DEXAMETHASONE [Suspect]
     Dosage: 20 MILLIGRAM
     Route: 065
     Dates: start: 20110120
  30. AMITRIPTYLINE HCL [Concomitant]
     Indication: BONE PAIN
     Dosage: 25 MILLIGRAM
     Route: 065
     Dates: start: 20100623, end: 20100628
  31. EXTRA STRENGTH TYLENOL [Concomitant]
     Indication: BACK PAIN
  32. DEXAMETHASONE [Suspect]
     Indication: MULTIPLE MYELOMA
     Dosage: 20 MILLIGRAM
     Route: 065
     Dates: start: 20100610
  33. ASPIRIN [Concomitant]
     Dosage: 81 MILLIGRAM
     Route: 065
     Dates: start: 20100610, end: 20100625
  34. SENOKOT [Concomitant]
     Indication: CONSTIPATION
     Route: 065
     Dates: start: 20100521, end: 20100609
  35. MS CONTIN [Concomitant]
     Dosage: 40 MILLIGRAM
     Route: 065
     Dates: start: 20101101, end: 20101201
  36. MS CONTIN [Concomitant]
     Dosage: 30 MILLIGRAM
     Route: 065
     Dates: start: 20101201

REACTIONS (1)
  - LUNG SQUAMOUS CELL CARCINOMA STAGE UNSPECIFIED [None]
